FAERS Safety Report 7618006 (Version 10)
Quarter: 2012Q4

REPORT INFORMATION
  Report Type: 
  Country: US (occurrence: US)
  Receive Date: 20101005
  Receipt Date: 20120920
  Transmission Date: 20130627
  Serious: Yes (Hospitalization, Other)
  Sender: FDA-Public Use
  Company Number: US-009507513-1010USA00121

PATIENT

DRUGS (7)
  1. FOSAMAX [Suspect]
     Indication: OSTEOPOROSIS
     Dosage: 10 mg, UNK
     Route: 048
     Dates: start: 19990623, end: 200112
  2. FOSAMAX [Suspect]
     Indication: OSTEOPENIA
     Dosage: 70 mg, UNK
     Route: 048
     Dates: start: 20020401, end: 20081003
  3. FOSAMAX D [Suspect]
     Indication: OSTEOPOROSIS
     Route: 048
  4. FOSAMAX D [Suspect]
     Indication: OSTEOPENIA
  5. FOSAMAX [Suspect]
     Indication: OSTEOPENIA
     Dosage: 70 mg, UNK
     Route: 048
     Dates: start: 20081004, end: 201008
  6. FOSAMAX [Suspect]
     Indication: OSTEOPOROSIS
  7. VITAPLEX [Concomitant]
     Route: 048
     Dates: start: 1996, end: 200610

REACTIONS (29)
  - Femur fracture [Unknown]
  - Fall [Unknown]
  - Muscle enzyme increased [Unknown]
  - Electrocardiogram T wave amplitude decreased [Unknown]
  - Sinus disorder [Unknown]
  - Uterine disorder [Unknown]
  - Upper respiratory tract infection [Unknown]
  - Urinary tract infection [Unknown]
  - Sinusitis [Unknown]
  - Hypertension [Unknown]
  - Tendonitis [Unknown]
  - Haemorrhoids [Unknown]
  - Diverticulum intestinal haemorrhagic [Unknown]
  - Hiatus hernia [Unknown]
  - Gastric polyps [Unknown]
  - Anxiety disorder [Unknown]
  - Depression [Unknown]
  - Blood pressure increased [Unknown]
  - Iron deficiency anaemia [Unknown]
  - Hypertension [Unknown]
  - Bone density decreased [Unknown]
  - Fungal infection [Unknown]
  - Dental caries [Unknown]
  - Hypokalaemia [Unknown]
  - Drug hypersensitivity [Unknown]
  - Drug hypersensitivity [Unknown]
  - Oesophagitis [Unknown]
  - Urticaria [Unknown]
  - Erosive oesophagitis [Unknown]
